FAERS Safety Report 21517559 (Version 3)
Quarter: 2023Q2

REPORT INFORMATION
  Report Type: Report from Study
  Country: US (occurrence: US)
  Receive Date: 20221028
  Receipt Date: 20230525
  Transmission Date: 20230722
  Serious: Yes (Other)
  Sender: FDA-Public Use
  Company Number: US-ABBVIE-4177193

PATIENT
  Sex: Female

DRUGS (5)
  1. IMBRUVICA [Suspect]
     Active Substance: IBRUTINIB
     Indication: Product used for unknown indication
     Route: 048
  2. IMBRUVICA [Suspect]
     Active Substance: IBRUTINIB
     Indication: Product used for unknown indication
     Route: 048
  3. PROLIA [Concomitant]
     Active Substance: DENOSUMAB
     Indication: Product used for unknown indication
     Route: 065
  4. NORVASC [Suspect]
     Active Substance: AMLODIPINE BESYLATE
     Indication: Product used for unknown indication
     Route: 065
  5. NORVASC [Suspect]
     Active Substance: AMLODIPINE BESYLATE
     Indication: Product used for unknown indication
     Route: 065

REACTIONS (14)
  - Skin cancer [Unknown]
  - Rash [Unknown]
  - Onychoclasis [Unknown]
  - Rosacea [Unknown]
  - Arthralgia [Unknown]
  - Hypertension [Unknown]
  - Blood pressure fluctuation [Unknown]
  - Skin disorder [Unknown]
  - Skin atrophy [Unknown]
  - Asthenia [Unknown]
  - Skin laceration [Unknown]
  - Urinary tract infection [Unknown]
  - Peripheral swelling [Unknown]
  - Joint swelling [Unknown]
